FAERS Safety Report 10768604 (Version 1)
Quarter: 2015Q1

REPORT INFORMATION
  Report Type: Spontaneous
  Country: US (occurrence: None)
  Receive Date: 20150205
  Receipt Date: 20150205
  Transmission Date: 20150721
  Serious: Yes (Death)
  Sender: FDA-Public Use
  Company Number: None

PATIENT
  Age: 70 Year
  Sex: Male

DRUGS (1)
  1. LOMUSTINE. [Suspect]
     Active Substance: LOMUSTINE
     Indication: BRAIN NEOPLASM MALIGNANT
     Dosage: 250 MG  EVERY 6 WEEKS PO
     Route: 048
     Dates: start: 201411, end: 201501

REACTIONS (2)
  - Pneumonia [None]
  - White blood cell count decreased [None]

NARRATIVE: CASE EVENT DATE: 20150108
